FAERS Safety Report 7236851-8 (Version None)
Quarter: 2011Q1

REPORT INFORMATION
  Report Type: 
  Country: None (occurrence: None)
  Receive Date: 20110120
  Receipt Date: 20110113
  Transmission Date: 20110831
  Serious: Yes (Hospitalization)
  Sender: FDA-Public Use
  Company Number: US-RB-008214-10

PATIENT
  Age: 29 Year
  Sex: Female

DRUGS (1)
  1. SUBOXONE [Suspect]
     Indication: PRODUCT USED FOR UNKNOWN INDICATION
     Dosage: DOSING INFORMATION UNKNOWN
     Route: 065

REACTIONS (11)
  - URTICARIA [None]
  - MENTAL DISORDER [None]
  - RHINORRHOEA [None]
  - DRUG WITHDRAWAL SYNDROME [None]
  - INTENTIONAL DRUG MISUSE [None]
  - PANIC ATTACK [None]
  - ANXIETY [None]
  - VOMITING [None]
  - DIARRHOEA [None]
  - CONSTIPATION [None]
  - INSOMNIA [None]
